FAERS Safety Report 5542376-8 (Version None)
Quarter: 2007Q4

REPORT INFORMATION
  Report Type: 
  Country: None (occurrence: None)
  Receive Date: 20071210
  Receipt Date: 20061230
  Transmission Date: 20080405
  Serious: No
  Sender: FDA-Public Use
  Company Number: US-AMGEN-KDL201997

PATIENT
  Sex: Female

DRUGS (2)
  1. ENBREL [Suspect]
     Indication: RHEUMATOID ARTHRITIS
     Route: 058
     Dates: start: 20061115
  2. METHOTREXATE [Concomitant]
     Dates: start: 20040101

REACTIONS (5)
  - CHEST PAIN [None]
  - HYPOAESTHESIA [None]
  - HYPOKINESIA [None]
  - NECK PAIN [None]
  - PALLOR [None]
